FAERS Safety Report 13025487 (Version 1)
Quarter: 2016Q4

REPORT INFORMATION
  Report Type: Spontaneous
  Country: GR (occurrence: GR)
  Receive Date: 20161214
  Receipt Date: 20161214
  Transmission Date: 20170207
  Serious: Yes (Hospitalization)
  Sender: FDA-Public Use
  Company Number: GR-APOTEX-2016AP015669

PATIENT
  Age: 32 Year
  Sex: Female

DRUGS (1)
  1. PAXIL [Suspect]
     Active Substance: PAROXETINE HYDROCHLORIDE
     Indication: MAJOR DEPRESSION
     Route: 065

REACTIONS (6)
  - Hypomania [Recovering/Resolving]
  - Delusion of grandeur [Recovering/Resolving]
  - Hypersexuality [Recovering/Resolving]
  - Disinhibition [Recovering/Resolving]
  - Mood swings [Recovering/Resolving]
  - Increased appetite [Recovering/Resolving]
